FAERS Safety Report 25013702 (Version 2)
Quarter: 2025Q2

REPORT INFORMATION
  Report Type: Spontaneous
  Country: US (occurrence: US)
  Receive Date: 20250226
  Receipt Date: 20250630
  Transmission Date: 20250716
  Serious: No
  Sender: UCB
  Company Number: US-UCBSA-2024035285

PATIENT
  Sex: Male

DRUGS (3)
  1. NAYZILAM [Suspect]
     Active Substance: MIDAZOLAM
     Indication: Partial seizures
  2. KEPPRA [Suspect]
     Active Substance: LEVETIRACETAM
     Indication: Partial seizures
  3. BACLOFEN [Concomitant]
     Active Substance: BACLOFEN
     Indication: Product used for unknown indication

REACTIONS (2)
  - Staring [Unknown]
  - Lethargy [Unknown]
